FAERS Safety Report 4963264-1 (Version None)
Quarter: 2006Q2

REPORT INFORMATION
  Report Type: 
  Country: None (occurrence: None)
  Receive Date: 20060405
  Receipt Date: 20000614
  Transmission Date: 20061013
  Serious: Yes (Other)
  Sender: FDA-Public Use
  Company Number: US-MERCK-00061641

PATIENT
  Age: 72 Year
  Sex: Female
  Weight: 82 kg

DRUGS (5)
  1. VIOXX [Suspect]
     Indication: OSTEOARTHRITIS
     Route: 048
     Dates: start: 20000314, end: 20010101
  2. VERAPAMIL [Concomitant]
     Route: 065
  3. DIAZIDE [Concomitant]
     Route: 065
  4. PREMARIN [Concomitant]
     Route: 065
  5. SYNTHROID [Concomitant]
     Indication: THYROID DISORDER
     Route: 065

REACTIONS (10)
  - ABDOMINAL DISTENSION [None]
  - AMNESIA [None]
  - ATRIAL FIBRILLATION [None]
  - BLOOD CHOLESTEROL INCREASED [None]
  - CEREBROVASCULAR ACCIDENT [None]
  - CONFUSIONAL STATE [None]
  - HYPERTENSION [None]
  - JOINT SWELLING [None]
  - LETHARGY [None]
  - WEIGHT INCREASED [None]
